FAERS Safety Report 14225670 (Version 4)
Quarter: 2017Q4

REPORT INFORMATION
  Report Type: Spontaneous
  Country: SE (occurrence: SE)
  Receive Date: 20171127
  Receipt Date: 20171212
  Transmission Date: 20180321
  Serious: Yes (Other)
  Sender: FDA-Public Use
  Company Number: SE-MYLANLABS-2017M1074075

PATIENT
  Sex: Female

DRUGS (2)
  1. NOVOPULMON NOVOLIZER [Suspect]
     Active Substance: BUDESONIDE
     Indication: NASOPHARYNGITIS
  2. NOVOPULMON NOVOLIZER [Suspect]
     Active Substance: BUDESONIDE
     Indication: ASTHMA
     Dosage: 2 DF, QD

REACTIONS (4)
  - Sensation of foreign body [Recovering/Resolving]
  - Product quality issue [Unknown]
  - Cough [Unknown]
  - Foreign body in respiratory tract [Recovering/Resolving]

NARRATIVE: CASE EVENT DATE: 20171022
